FAERS Safety Report 14718441 (Version 1)
Quarter: 2018Q2

REPORT INFORMATION
  Report Type: Spontaneous
  Country: US (occurrence: US)
  Receive Date: 20180404
  Receipt Date: 20180404
  Transmission Date: 20180711
  Serious: No
  Sender: FDA-Public Use
  Company Number: US-SA-2018SA080226

PATIENT
  Age: 17 Year
  Sex: Female

DRUGS (1)
  1. DUPIXENT [Suspect]
     Active Substance: DUPILUMAB
     Indication: ECZEMA
     Route: 058
     Dates: start: 201801

REACTIONS (4)
  - Hypersensitivity [Unknown]
  - Nasopharyngitis [Unknown]
  - Off label use [Unknown]
  - Drug dose omission [Unknown]

NARRATIVE: CASE EVENT DATE: 201801
